FAERS Safety Report 4460472-3 (Version None)
Quarter: 2004Q3

REPORT INFORMATION
  Report Type: 
  Country: None (occurrence: None)
  Receive Date: 20040928
  Receipt Date: 20040825
  Transmission Date: 20050211
  Serious: No
  Sender: FDA-Public Use
  Company Number: US-GLAXOSMITHKLINE-A0523469A

PATIENT
  Age: 71 Year
  Sex: Male

DRUGS (4)
  1. SEREVENT [Suspect]
     Indication: BRONCHOSPASM
     Dosage: 1PUFF TWICE PER DAY
     Route: 055
     Dates: start: 20040601, end: 20040824
  2. COMBIVENT [Concomitant]
  3. ATROVENT [Concomitant]
  4. ADVAIR DISKUS 100/50 [Concomitant]

REACTIONS (1)
  - COUGH [None]
